FAERS Safety Report 7816869-4 (Version None)
Quarter: 2011Q4

REPORT INFORMATION
  Report Type: 
  Country: None (occurrence: None)
  Receive Date: 20111017
  Receipt Date: 20110425
  Transmission Date: 20120403
  Serious: No
  Sender: FDA-Public Use
  Company Number: US-GLAXOSMITHKLINE-A0924392A

PATIENT
  Age: 71 Year
  Sex: Female

DRUGS (6)
  1. HYDROCORTISONE ACETATE [Concomitant]
  2. BENADRYL [Concomitant]
  3. CEFTIN [Suspect]
     Indication: BRONCHITIS
     Dosage: 250MG TWICE PER DAY
     Route: 048
     Dates: start: 20110423
  4. DURICEF [Suspect]
  5. PREMARIN [Concomitant]
  6. RHINOCORT [Concomitant]

REACTIONS (4)
  - RESPIRATORY DISORDER [None]
  - DIARRHOEA [None]
  - MUSCLE SPASMS [None]
  - RASH [None]
